FAERS Safety Report 4993985-6 (Version None)
Quarter: 2006Q2

REPORT INFORMATION
  Report Type: 
  Country: None (occurrence: None)
  Receive Date: 20060503
  Receipt Date: 20060418
  Transmission Date: 20061013
  Serious: Yes (Hospitalization)
  Sender: FDA-Public Use
  Company Number: BR200604003222

PATIENT
  Age: 70 Year
  Sex: Female
  Weight: 47 kg

DRUGS (6)
  1. FORTEO [Suspect]
     Indication: OSTEOPOROSIS
     Dosage: 20 UG, DAILY (1/D), SUBCUTANEOUS
     Route: 058
     Dates: start: 20050614
  2. FORTEO PEN (FORTEO PEN) [Concomitant]
  3. OMEPRAZOLE [Concomitant]
  4. RIVOTRIL /NOR/ (CLONAZEPAM) [Concomitant]
  5. CLONIXIN LYSINATE (CLONIXIN LYSINATE) [Concomitant]
  6. CASCARA SAGRADA (CASCARA) [Concomitant]

REACTIONS (1)
  - BONE PAIN [None]
